FAERS Safety Report 5655818-4 (Version None)
Quarter: 2008Q1

REPORT INFORMATION
  Report Type: 
  Country: None (occurrence: None)
  Receive Date: 20080307
  Receipt Date: 20080229
  Transmission Date: 20080703
  Serious: Yes (Other)
  Sender: FDA-Public Use
  Company Number: US-PFIZER INC-2008011229

PATIENT
  Sex: Female
  Weight: 79.4 kg

DRUGS (8)
  1. CELEBREX [Suspect]
     Indication: INFLAMMATION
  2. CELEBREX [Suspect]
     Indication: BACK PAIN
  3. CELEBREX [Suspect]
     Indication: MUSCLE STRAIN
  4. ZYRTEC-D 12 HOUR [Suspect]
     Indication: HYPERSENSITIVITY
  5. NEXIUM [Suspect]
     Indication: PROPHYLAXIS
  6. NAPROSYN [Suspect]
     Indication: PAIN
  7. NAPROSYN [Suspect]
     Indication: INFLAMMATION
  8. ZYRTEC [Concomitant]

REACTIONS (5)
  - DEPRESSION [None]
  - GASTRIC DISORDER [None]
  - HERNIA [None]
  - PAIN [None]
  - WEIGHT INCREASED [None]
